FAERS Safety Report 18854597 (Version 2)
Quarter: 2021Q1

REPORT INFORMATION
  Report Type: Other
  Country: US (occurrence: US)
  Receive Date: 20210205
  Receipt Date: 20210304
  Transmission Date: 20210420
  Serious: Yes (Other)
  Sender: FDA-Public Use
  Company Number: US-ROCHE-2764562

PATIENT
  Sex: Female

DRUGS (1)
  1. XELODA [Suspect]
     Active Substance: CAPECITABINE
     Indication: BREAST CANCER FEMALE
     Dosage: TAKE 3 TABLET(S) BY MOUTH TWICE A DAY DAYS 1?14 EVERY 21 DAY(S)
     Route: 048

REACTIONS (2)
  - Colon cancer [Unknown]
  - Palmar-plantar erythrodysaesthesia syndrome [Recovering/Resolving]
